FAERS Safety Report 6125545-8 (Version None)
Quarter: 2009Q1

REPORT INFORMATION
  Report Type: 
  Country: None (occurrence: None)
  Receive Date: 20090320
  Receipt Date: 20090310
  Transmission Date: 20090719
  Serious: Yes (Other)
  Sender: FDA-Public Use
  Company Number: FR-SANOFI-SYNTHELABO-A02200900667

PATIENT
  Age: 81 Year
  Sex: Male

DRUGS (2)
  1. GEMZAR [Concomitant]
     Indication: BILE DUCT CANCER
     Route: 042
     Dates: start: 20090309
  2. ELOXATIN [Suspect]
     Indication: BILE DUCT CANCER
     Route: 041
     Dates: start: 20090309

REACTIONS (2)
  - HEMIPARESIS [None]
  - ISCHAEMIC STROKE [None]
